FAERS Safety Report 24618296 (Version 1)
Quarter: 2024Q4

REPORT INFORMATION
  Report Type: Spontaneous
  Country: US (occurrence: US)
  Receive Date: 20241114
  Receipt Date: 20241114
  Transmission Date: 20250115
  Serious: No
  Sender: MYLAN
  Company Number: US-MYLANLABS-2024M1101437

PATIENT
  Sex: Female
  Weight: 53.968 kg

DRUGS (1)
  1. ESTRADIOL TRANSDERMAL SYSTEM [Suspect]
     Active Substance: ESTRADIOL
     Indication: Product used for unknown indication
     Dosage: 0.05 MILLIGRAM, BIWEEKLY (ONE PATCH TWICE WEEKLY)
     Route: 062

REACTIONS (1)
  - Wrong technique in product usage process [Unknown]
